FAERS Safety Report 24531588 (Version 1)
Quarter: 2024Q4

REPORT INFORMATION
  Report Type: Report from Study
  Country: MX (occurrence: MX)
  Receive Date: 20241022
  Receipt Date: 20241022
  Transmission Date: 20250115
  Serious: No
  Sender: ROCHE
  Company Number: MX-ROCHE-3513237

PATIENT
  Age: 37 Year
  Sex: Male
  Weight: 65.0 kg

DRUGS (11)
  1. PULMOZYME [Suspect]
     Active Substance: DORNASE ALFA
     Indication: Cystic fibrosis
     Dosage: DOSE OF 1 AMPOULE
     Route: 055
     Dates: start: 200603, end: 2022
  2. PULMOZYME [Suspect]
     Active Substance: DORNASE ALFA
     Dosage: DOSE OF 1 AMPOULE
     Route: 055
     Dates: start: 202209
  3. FENOTEROL\IPRATROPIUM BROMIDE [Concomitant]
     Active Substance: FENOTEROL\IPRATROPIUM BROMIDE
     Dosage: DOSE AND FREQUENCY WERE NOT REPORTED
  4. COMBIVENT [Concomitant]
     Active Substance: ALBUTEROL SULFATE\IPRATROPIUM BROMIDE
     Dosage: DOSE AND FREQUENCY WERE NOT REPORTED
  5. ARBISTIN [Concomitant]
     Dosage: DOSE AND FREQUENCY WERE NOT REPORTED
  6. THEOPHYLLINE [Concomitant]
     Active Substance: THEOPHYLLINE
     Dosage: DOSE AND FREQUENCY WERE NOT REPORTED
  7. LOPERAMIDE [Concomitant]
     Active Substance: LOPERAMIDE
     Indication: Abdominal discomfort
     Dosage: DOSE AND FREQUENCY WERE NOT REPORTED
  8. AMANTADINE;CHLORPHENAMINE;PARACETAMOL [Concomitant]
     Dosage: DOSE AND FREQUENCY WERE NOT REPORTED
  9. TRIKAFTA [Concomitant]
     Active Substance: ELEXACAFTOR\IVACAFTOR\TEZACAFTOR
     Dosage: DOSE AND FREQUENCY WERE NOT REPORTED
  10. FLUTICASONE [Concomitant]
     Active Substance: FLUTICASONE
     Dosage: DOSE AND FREQUENCY WERE NOT REPORTED
     Route: 045
  11. LORATADINE [Concomitant]
     Active Substance: LORATADINE
     Dosage: DOSE AND FREQUENCY WERE NOT REPORTED

REACTIONS (3)
  - Productive cough [Recovered/Resolved]
  - Off label use [Unknown]
  - Oropharyngeal pain [Recovering/Resolving]

NARRATIVE: CASE EVENT DATE: 20220901
